FAERS Safety Report 23747156 (Version 1)
Quarter: 2024Q2

REPORT INFORMATION
  Report Type: Report from Study
  Country: DE (occurrence: DE)
  Receive Date: 20240416
  Receipt Date: 20240416
  Transmission Date: 20240716
  Serious: Yes (Hospitalization)
  Sender: FDA-Public Use
  Company Number: DE-ROCHE-3451024

PATIENT
  Age: 62 Year
  Sex: Female
  Weight: 85 kg

DRUGS (9)
  1. PACLITAXEL [Suspect]
     Active Substance: PACLITAXEL
     Indication: Breast cancer metastatic
     Dosage: 345 MILLIGRAM, QW (START DATE OF MOST RECENT DOSE OF STUDY DRUG PRIOR TO AE 21-SEP-2023  )
     Route: 042
     Dates: start: 20230719
  2. PACLITAXEL [Suspect]
     Active Substance: PACLITAXEL
     Dosage: 175 MILLIGRAM, QW (ON 21/SEP/2023 PATIENT RECEIVED MOST RECENT DOSE OF STUDY DRUG PRIOR TO AE/SAE)
     Route: 042
  3. PACLITAXEL [Suspect]
     Active Substance: PACLITAXEL
     Dosage: ON 21/SEP/2023 PATIENT RECEIVED MOST RECENT DOSE OF STUDY DRUG PRIOR TO AE/SAE
     Route: 042
     Dates: start: 20230921
  4. GIREDESTRANT [Concomitant]
     Active Substance: GIREDESTRANT
     Indication: Breast cancer metastatic
     Dosage: 600 MILLIGRAM QD  (ON 26/OCT/2023 PATIENT RECEIVED MOST RECENT DOSE OF STUDY DRUG PRIOR TO AE)
     Route: 065
     Dates: start: 20231012
  5. GIREDESTRANT [Concomitant]
     Active Substance: GIREDESTRANT
     Dosage: 30 MILLIGRAM, QD (RECEIVED THE MOST RECENT DOSE PRIOR THE ONSET DATE OF AE (COUGH))
     Route: 065
     Dates: start: 20231022
  6. GIREDESTRANT [Concomitant]
     Active Substance: GIREDESTRANT
     Dosage: 30 MILLIGRAM, QD (RECEIVED MOST RECENT DOSE OF STUDY DRUG PRIOR TO AE (VIRAL PNEUMONITIS))
     Route: 065
     Dates: start: 20231026
  7. GIREDESTRANT [Concomitant]
     Active Substance: GIREDESTRANT
     Dosage: 30 MILLIGRAM, QD (RECEIVED MOST RECENT DOSE OF STUDY DRUG PRIOR TO SAE 30 MG)
     Route: 065
     Dates: start: 20231029
  8. PERTUZUMAB\TRASTUZUMAB [Concomitant]
     Active Substance: PERTUZUMAB\TRASTUZUMAB
     Indication: Breast cancer metastatic
     Dosage: 600 MILLIGRAM Q3W (ON12/OCT/2023 PATIENT RECEIVED MOST RECENT DOSE OF STUDY DRUG PRIOR TO AE/SAE)
     Route: 065
     Dates: start: 20230719
  9. PERTUZUMAB\TRASTUZUMAB [Concomitant]
     Active Substance: PERTUZUMAB\TRASTUZUMAB
     Dosage: 600 MILLIGRAM
     Route: 065
     Dates: start: 20231012

REACTIONS (2)
  - Cough [Recovered/Resolved]
  - Pneumonia viral [Recovered/Resolved with Sequelae]

NARRATIVE: CASE EVENT DATE: 20231023
